FAERS Safety Report 5682499-6 (Version None)
Quarter: 2008Q1

REPORT INFORMATION
  Report Type: 
  Country: None (occurrence: None)
  Receive Date: 20080326
  Receipt Date: 20080326
  Transmission Date: 20080703
  Serious: No
  Sender: FDA-Public Use
  Company Number: None

PATIENT
  Age: 71 Year
  Sex: Female
  Weight: 95 kg

DRUGS (16)
  1. AZATHIOPRINE [Suspect]
     Indication: OBLITERATIVE BRONCHIOLITIS
     Dosage: 100 MG PO Q 24
     Dates: start: 20071225, end: 20080104
  2. BUPROPION HCL [Concomitant]
  3. CEFEPIME [Concomitant]
  4. DIVALPROEX [Concomitant]
  5. DONEPEZIL HCL [Concomitant]
  6. FISH OIL [Concomitant]
  7. LANSOPRAZOLE [Concomitant]
  8. LEVOTHYROXINE SODIUM [Concomitant]
  9. METRONIDAZOLE HCL [Concomitant]
  10. BOSENTAN [Concomitant]
  11. PREDNISONE [Concomitant]
  12. SIMVASTATIN [Concomitant]
  13. BACTRIM [Concomitant]
  14. DOPAMIDE [Concomitant]
  15. FENTANYL [Concomitant]
  16. HEPARIN [Concomitant]

REACTIONS (12)
  - BLOOD PRESSURE DECREASED [None]
  - DRUG HYPERSENSITIVITY [None]
  - DYSPNOEA [None]
  - HYPOXIA [None]
  - MUSCULOSKELETAL PAIN [None]
  - NAUSEA [None]
  - NECK PAIN [None]
  - PRESYNCOPE [None]
  - RASH [None]
  - RESPIRATORY FAILURE [None]
  - SEPSIS [None]
  - SKIN LESION [None]
